FAERS Safety Report 24283883 (Version 1)
Quarter: 2024Q3

REPORT INFORMATION
  Report Type: Spontaneous
  Country: US (occurrence: US)
  Receive Date: 20240905
  Receipt Date: 20240905
  Transmission Date: 20241017
  Serious: Yes (Other)
  Sender: STRIDES
  Company Number: US-STRIDES ARCOLAB LIMITED-2023SP016899

PATIENT
  Age: 14 Year
  Sex: Female
  Weight: 66.5 kg

DRUGS (3)
  1. TACROLIMUS [Interacting]
     Active Substance: TACROLIMUS
     Indication: Immunosuppressant drug therapy
     Dosage: UNK
     Route: 065
  2. TACROLIMUS [Interacting]
     Active Substance: TACROLIMUS
     Indication: Renal transplant
  3. PAXLOVID [Interacting]
     Active Substance: NIRMATRELVIR\RITONAVIR
     Indication: COVID-19
     Dosage: UNK, (PRESCRIBED ON A WEEKEND NIM-RTV AT AN OUTSIDE PHARMACY WITHOUT REDUCTION IN TACROLIMUS DOSAGE)
     Route: 065

REACTIONS (4)
  - Drug interaction [Unknown]
  - Acute kidney injury [Recovered/Resolved]
  - Toxicity to various agents [Recovered/Resolved]
  - COVID-19 [Unknown]
